FAERS Safety Report 19502366 (Version 2)
Quarter: 2021Q3

REPORT INFORMATION
  Report Type: Other
  Country: GB (occurrence: CA)
  Receive Date: 20210707
  Receipt Date: 20210712
  Transmission Date: 20211014
  Serious: Yes (Other)
  Sender: FDA-Public Use
  Company Number: CA-ASTELLAS-2021US024547

PATIENT
  Age: 58 Year
  Sex: Female

DRUGS (7)
  1. ERLOTINIB [Suspect]
     Active Substance: ERLOTINIB
     Indication: NON-SMALL CELL LUNG CANCER METASTATIC
     Dosage: UNK UNK, UNKNOWN FREQ.
     Route: 065
  2. PEMETREXED. [Suspect]
     Active Substance: PEMETREXED
     Indication: NON-SMALL CELL LUNG CANCER METASTATIC
     Dosage: UNK UNK, UNKNOWN FREQ.
     Route: 065
  3. MERELETINIB MESILATE [Suspect]
     Active Substance: OSIMERTINIB MESYLATE
     Indication: PRODUCT USED FOR UNKNOWN INDICATION
     Dosage: UNK UNK, UNKNOWN FREQ.
     Route: 048
  4. CARBOPLATIN. [Suspect]
     Active Substance: CARBOPLATIN
     Indication: NON-SMALL CELL LUNG CANCER METASTATIC
     Dosage: UNK UNK, UNKNOWN FREQ.
     Route: 065
  5. GEFITINIB. [Suspect]
     Active Substance: GEFITINIB
     Indication: NON-SMALL CELL LUNG CANCER METASTATIC
     Dosage: UNK UNK, UNKNOWN FREQ.
     Route: 048
  6. GEMCITABINE HYDROCHLORIDE. [Suspect]
     Active Substance: GEMCITABINE HYDROCHLORIDE
     Indication: NON-SMALL CELL LUNG CANCER METASTATIC
     Dosage: UNK, UNKNOWN FREQ.
     Route: 065
  7. VINORELBINE TARTRATE. [Suspect]
     Active Substance: VINORELBINE TARTRATE
     Indication: NON-SMALL CELL LUNG CANCER METASTATIC
     Dosage: UNK UNK, UNKNOWN FREQ.
     Route: 065

REACTIONS (6)
  - Hepatotoxicity [Unknown]
  - Acquired gene mutation [Unknown]
  - Pulmonary embolism [Unknown]
  - Drug resistance [Unknown]
  - Neoplasm progression [Unknown]
  - Hepatitis [Unknown]
